FAERS Safety Report 5388393-2 (Version None)
Quarter: 2007Q3

REPORT INFORMATION
  Report Type: 
  Country: None (occurrence: None)
  Receive Date: 20070716
  Receipt Date: 20070705
  Transmission Date: 20080115
  Serious: Yes (Hospitalization, Other)
  Sender: FDA-Public Use
  Company Number: CA-JNJFOC-20060900164

PATIENT
  Sex: Female

DRUGS (5)
  1. REMICADE [Suspect]
     Route: 042
  2. REMICADE [Suspect]
     Route: 042
  3. REMICADE [Suspect]
     Dosage: ABOUT A YEAR
     Route: 042
  4. REMICADE [Suspect]
     Indication: CROHN'S DISEASE
     Dosage: ABOUT A YEAR
     Route: 042
  5. IMURAN [Concomitant]
     Indication: CROHN'S DISEASE
     Route: 048

REACTIONS (1)
  - HERPES ZOSTER [None]
